FAERS Safety Report 9972916 (Version 1)
Quarter: 2014Q1

REPORT INFORMATION
  Report Type: Spontaneous
  Country: US (occurrence: US)
  Receive Date: 20140306
  Receipt Date: 20140306
  Transmission Date: 20141002
  Serious: No
  Sender: FDA-Public Use
  Company Number: US-PFIZER INC-2014061153

PATIENT
  Age: 29 Year
  Sex: Female
  Weight: 68.03 kg

DRUGS (3)
  1. PRISTIQ [Suspect]
     Indication: DEPRESSION
     Dosage: 25 MG (BY SPLITTING 50 MG TABLET IN HALVES), 1X/DAY
     Dates: start: 20140301
  2. PRISTIQ [Interacting]
     Dosage: 50 MG, 1X/DAY
  3. LIPO-6 [Interacting]
     Indication: WEIGHT DECREASED
     Dosage: 2 DF, 1X/DAY (TWO TABLETS DAILY)
     Dates: start: 201402

REACTIONS (7)
  - Wrong technique in drug usage process [Recovered/Resolved]
  - Drug interaction [Unknown]
  - Presyncope [Recovering/Resolving]
  - Mydriasis [Not Recovered/Not Resolved]
  - Erythema [Unknown]
  - Tremor [Unknown]
  - Dizziness [Unknown]
